FAERS Safety Report 8449010-8 (Version None)
Quarter: 2012Q2

REPORT INFORMATION
  Report Type: 
  Country: None (occurrence: None)
  Receive Date: 20120619
  Receipt Date: 20120614
  Transmission Date: 20120825
  Serious: Yes (Hospitalization, Other)
  Sender: FDA-Public Use
  Company Number: PHHY2012BR030921

PATIENT
  Sex: Female

DRUGS (2)
  1. EXELON [Suspect]
     Indication: CONFUSIONAL STATE
  2. EXELON [Suspect]
     Indication: MEMORY IMPAIRMENT
     Dosage: 4.6 MG, UNK
     Route: 062

REACTIONS (1)
  - BACTERIAL INFECTION [None]
